FAERS Safety Report 17014020 (Version 1)
Quarter: 2019Q4

REPORT INFORMATION
  Report Type: Spontaneous
  Country: JP (occurrence: JP)
  Receive Date: 20191111
  Receipt Date: 20191111
  Transmission Date: 20200122
  Serious: Yes (Death, Other)
  Sender: FDA-Public Use
  Company Number: JP-ASTELLAS-2019JP023563

PATIENT
  Age: 9 Decade
  Sex: Male

DRUGS (1)
  1. FUNGUARD [Suspect]
     Active Substance: MICAFUNGIN SODIUM
     Indication: CANDIDA INFECTION
     Dosage: 100 MG/DAY, UNKNOWN FREQ.
     Route: 042
     Dates: start: 20191008, end: 20191017

REACTIONS (2)
  - Hepatic cancer [Fatal]
  - Bile duct cancer [Fatal]

NARRATIVE: CASE EVENT DATE: 20191017
